FAERS Safety Report 21152316 (Version 2)
Quarter: 2024Q1

REPORT INFORMATION
  Report Type: Spontaneous
  Country: US (occurrence: US)
  Receive Date: 20220730
  Receipt Date: 20240208
  Transmission Date: 20240410
  Serious: No
  Sender: FDA-Public Use
  Company Number: US-SA-SAC20220725001962

PATIENT
  Sex: Male
  Weight: 98.4 kg

DRUGS (14)
  1. FABRAZYME [Suspect]
     Active Substance: AGALSIDASE BETA
     Indication: Fabry^s disease
     Dosage: 100 MG, QOW
     Route: 042
     Dates: start: 20130316
  2. EPINEPHRINE [Concomitant]
     Active Substance: EPINEPHRINE
     Dosage: UNK
  3. EPINEPHRINE [Concomitant]
     Active Substance: EPINEPHRINE
  4. NAPROXEN SODIUM [Concomitant]
     Active Substance: NAPROXEN\NAPROXEN SODIUM
     Dosage: UNK
  5. GLUCOSAMINE [Concomitant]
     Active Substance: GLUCOSAMINE
     Dosage: UNK
  6. STERILE WATER [Concomitant]
     Active Substance: WATER
     Dosage: UNK
  7. VITAMINS [Concomitant]
     Active Substance: VITAMINS
     Dosage: UNK
  8. CYCLOBENZAPRINE [Concomitant]
     Active Substance: CYCLOBENZAPRINE
     Dosage: UNK
  9. SODIUM CHLORIDE [Concomitant]
     Active Substance: SODIUM CHLORIDE
     Dosage: UNK
  10. SODIUM CHLORIDE [Concomitant]
     Active Substance: SODIUM CHLORIDE
  11. LORATADINE [Concomitant]
     Active Substance: LORATADINE
     Dosage: UNK
  12. NAPROXEN [Concomitant]
     Active Substance: NAPROXEN
  13. CYCLOBENZAPRINE HYDROCHLORIDE [Concomitant]
     Active Substance: CYCLOBENZAPRINE HYDROCHLORIDE
  14. VITAMINS NOS [Concomitant]
     Active Substance: VITAMINS

REACTIONS (1)
  - Hypertension [Unknown]
